FAERS Safety Report 24574951 (Version 1)
Quarter: 2024Q4

REPORT INFORMATION
  Report Type: Spontaneous
  Country: FR (occurrence: FR)
  Receive Date: 20241104
  Receipt Date: 20241104
  Transmission Date: 20250115
  Serious: Yes (Hospitalization, Other)
  Sender: AUROBINDO
  Company Number: FR-AFSSAPS-DJ2024000901

PATIENT
  Age: 72 Year
  Sex: Male
  Weight: 78 kg

DRUGS (3)
  1. CARBOPLATIN [Suspect]
     Active Substance: CARBOPLATIN
     Indication: Lung adenocarcinoma
     Dosage: 545 MILLIGRAM, CYCLICAL
     Route: 042
     Dates: start: 20240506
  2. PEMETREXED [Suspect]
     Active Substance: PEMETREXED
     Indication: Lung adenocarcinoma
     Dosage: 975 MILLIGRAM, CYCLICAL
     Route: 042
     Dates: start: 20240506
  3. MEDROL [Suspect]
     Active Substance: METHYLPREDNISOLONE
     Indication: Brain oedema
     Dosage: 150 MILLIGRAM, ONCE A DAY
     Route: 048
     Dates: start: 202404, end: 20240530

REACTIONS (1)
  - Pancreatitis acute [Recovering/Resolving]

NARRATIVE: CASE EVENT DATE: 20240509
